FAERS Safety Report 21033123 (Version 7)
Quarter: 2024Q3

REPORT INFORMATION
  Report Type: Spontaneous
  Country: KR (occurrence: KR)
  Receive Date: 20220701
  Receipt Date: 20240702
  Transmission Date: 20241016
  Serious: Yes (Death, Hospitalization, Other)
  Sender: MERCK
  Company Number: KR-009507513-2206KOR008466

PATIENT
  Age: 54 Year
  Sex: Female
  Weight: 66.2 kg

DRUGS (5)
  1. PEMBROLIZUMAB [Suspect]
     Active Substance: PEMBROLIZUMAB
     Indication: Ovarian epithelial cancer recurrent
     Dosage: TOTAL DAILY DOSE (UNIT): 200 MILLIGRAM
     Route: 042
     Dates: start: 20220604, end: 20220604
  2. LENVATINIB MESYLATE [Suspect]
     Active Substance: LENVATINIB MESYLATE
     Indication: Ovarian epithelial cancer recurrent
     Dosage: TOTAL DAILY DOSE (UNIT): 20 MILLIGRAM
     Route: 048
     Dates: start: 20220604, end: 20220616
  3. LENVATINIB MESYLATE [Suspect]
     Active Substance: LENVATINIB MESYLATE
     Dosage: TOTAL DAILY DOSE (UNIT): 14 MILLIGRAM
     Route: 048
     Dates: start: 20220617, end: 20220624
  4. URSODIOL [Concomitant]
     Active Substance: URSODIOL
     Dosage: 200 MILLIGRAM
     Route: 048
     Dates: start: 20220604, end: 20220709
  5. DIETARY SUPPLEMENT\HERBALS\MILK THISTLE [Concomitant]
     Active Substance: MILK THISTLE
     Indication: Liver disorder
     Dosage: 140 MILLIGRAM
     Route: 048
     Dates: start: 20220604, end: 20220709

REACTIONS (4)
  - Cardiac arrest [Fatal]
  - Cardiac failure [Fatal]
  - Drug-induced liver injury [Not Recovered/Not Resolved]
  - Product use in unapproved indication [Unknown]

NARRATIVE: CASE EVENT DATE: 20220604
